FAERS Safety Report 8719738 (Version 6)
Quarter: 2013Q3

REPORT INFORMATION
  Report Type: Report from Study
  Country: CA (occurrence: CA)
  Receive Date: 20120813
  Receipt Date: 20130718
  Transmission Date: 20140515
  Serious: Yes (Death, Hospitalization, Other)
  Sender: FDA-Public Use
  Company Number: PHHY2012CA069340

PATIENT
  Age: 72 Year
  Sex: Female

DRUGS (2)
  1. SANDOSTATIN LAR [Suspect]
     Indication: TELANGIECTASIA
     Dosage: 20 MG, ONCE A MONTH
     Route: 030
     Dates: start: 20120611, end: 20130621
  2. EPREX [Concomitant]
     Dosage: 1 DF, EVERY 4 WEEKS

REACTIONS (10)
  - Death [Fatal]
  - Metastases to lung [Unknown]
  - Coronary artery occlusion [Unknown]
  - Pulmonary oedema [Unknown]
  - Diabetes mellitus inadequate control [Unknown]
  - Myocardial infarction [Unknown]
  - Pneumonia [Unknown]
  - Blood pressure increased [Unknown]
  - Blood potassium increased [Unknown]
  - Body temperature decreased [Unknown]
